FAERS Safety Report 17219290 (Version 1)
Quarter: 2019Q4

REPORT INFORMATION
  Report Type: Spontaneous
  Country: US (occurrence: US)
  Receive Date: 20191231
  Receipt Date: 20191231
  Transmission Date: 20200122
  Serious: Yes (Hospitalization)
  Sender: FDA-Public Use
  Company Number: NVSC2019US082530

PATIENT
  Age: 50 Year
  Sex: Male

DRUGS (2)
  1. DIGOXIN. [Suspect]
     Active Substance: DIGOXIN
     Indication: ARRHYTHMIA
     Dosage: UNK
     Route: 065
  2. DILTIAZEM. [Suspect]
     Active Substance: DILTIAZEM
     Indication: ARRHYTHMIA
     Dosage: UNK
     Route: 065

REACTIONS (1)
  - Arrhythmia [Unknown]
